FAERS Safety Report 4820234-1 (Version None)
Quarter: 2005Q4

REPORT INFORMATION
  Report Type: 
  Country: None (occurrence: None)
  Receive Date: 20051011
  Receipt Date: 20050323
  Transmission Date: 20060501
  Serious: Yes (Other)
  Sender: FDA-Public Use
  Company Number: US-JNJFOC-20050105008

PATIENT
  Age: 68 Year
  Sex: Male

DRUGS (1)
  1. RETEVASE [Suspect]
     Indication: MYOCARDIAL INFARCTION
     Dosage: 10 IU, 1 IN 1 TOTAL, INTRAVENOUS
     Route: 042
     Dates: start: 20050112, end: 20050112

REACTIONS (1)
  - MYOCARDIAL INFARCTION [None]
